FAERS Safety Report 6996463-8 (Version None)
Quarter: 2010Q3

REPORT INFORMATION
  Report Type: 
  Country: None (occurrence: None)
  Receive Date: 20100918
  Receipt Date: 20090302
  Transmission Date: 20110219
  Serious: No
  Sender: FDA-Public Use
  Company Number: US-WYE-H08419009

PATIENT
  Sex: Female
  Weight: 139.38 kg

DRUGS (3)
  1. EFFEXOR XR [Suspect]
     Indication: PANIC DISORDER
     Route: 048
     Dates: start: 20090204, end: 20090201
  2. EFFEXOR XR [Suspect]
     Route: 048
     Dates: start: 20090228, end: 20090301
  3. VITAMINS WITH MINERALS [Concomitant]

REACTIONS (7)
  - AGITATION [None]
  - ANXIETY [None]
  - APATHY [None]
  - CRYING [None]
  - DECREASED APPETITE [None]
  - DRUG WITHDRAWAL SYNDROME [None]
  - PANIC ATTACK [None]
